FAERS Safety Report 9896461 (Version 1)
Quarter: 2014Q1

REPORT INFORMATION
  Report Type: Spontaneous
  Country: US (occurrence: US)
  Receive Date: 20140213
  Receipt Date: 20140213
  Transmission Date: 20141002
  Serious: No
  Sender: FDA-Public Use
  Company Number: US-BRISTOL-MYERS SQUIBB COMPANY-17449752

PATIENT
  Age: 44 Year
  Sex: Female
  Weight: 129.25 kg

DRUGS (2)
  1. ORENCIA [Suspect]
     Indication: RHEUMATOID ARTHRITIS
     Dosage: LAT INJ: 25FEB2013
     Route: 058
     Dates: start: 201208
  2. ORENCIA [Suspect]
     Indication: SYSTEMIC LUPUS ERYTHEMATOSUS
     Dosage: LAT INJ: 25FEB2013
     Route: 058
     Dates: start: 201208

REACTIONS (3)
  - Weight increased [Unknown]
  - Pain [Unknown]
  - Butterfly rash [Unknown]
